FAERS Safety Report 16784937 (Version 1)
Quarter: 2019Q3

REPORT INFORMATION
  Report Type: Spontaneous
  Country: US (occurrence: US)
  Receive Date: 20190717
  Receipt Date: 20190717
  Transmission Date: 20191005
  Serious: Yes (Hospitalization)
  Sender: FDA-Public Use
  Company Number: None

PATIENT
  Age: 55 Year
  Sex: Male

DRUGS (1)
  1. PENICLLIN G POTASSIUM [Suspect]
     Active Substance: PENICILLIN G POTASSIUM
     Dates: start: 20181203, end: 20181206

REACTIONS (1)
  - Angioedema [None]

NARRATIVE: CASE EVENT DATE: 20181206
